FAERS Safety Report 9096170 (Version 2)
Quarter: 2013Q2

REPORT INFORMATION
  Report Type: Spontaneous
  Country: FR (occurrence: FR)
  Receive Date: 20130207
  Receipt Date: 20130612
  Transmission Date: 20140414
  Serious: Yes (Death, Life-Threatening, Hospitalization, Other)
  Sender: FDA-Public Use
  Company Number: FR-ACTELION-A-CH2013-78774

PATIENT
  Age: 66 Year
  Sex: Male

DRUGS (13)
  1. TRACLEER [Suspect]
     Indication: VENOOCCLUSIVE DISEASE
     Dosage: UNK
     Route: 048
     Dates: start: 20130122, end: 20130126
  2. INEXIUM [Concomitant]
  3. DIFFU K [Concomitant]
  4. LIPANTHYL [Concomitant]
  5. ISOPTINE [Concomitant]
  6. TOPALGIC [Concomitant]
  7. SPIRIVA [Concomitant]
  8. FORLAX [Concomitant]
  9. SERETIDE [Concomitant]
  10. LASILIX [Concomitant]
  11. PREVISCAN [Concomitant]
  12. BISOPROLOL [Concomitant]
  13. HEMIGOXINE [Concomitant]

REACTIONS (7)
  - Pancreatitis acute [Fatal]
  - Multi-organ failure [Unknown]
  - Pyrexia [Fatal]
  - Acute respiratory distress syndrome [Fatal]
  - Tachycardia [Fatal]
  - Hypertensive crisis [Fatal]
  - Abdominal pain upper [Fatal]
